FAERS Safety Report 10254542 (Version 1)
Quarter: 2014Q2

REPORT INFORMATION
  Report Type: Spontaneous
  Country: US (occurrence: None)
  Receive Date: 20140620
  Receipt Date: 20140620
  Transmission Date: 20141212
  Serious: No
  Sender: FDA-Public Use
  Company Number: None

PATIENT
  Age: 37 Year
  Sex: Female

DRUGS (1)
  1. KARIVA [Suspect]
     Indication: CONTRACEPTION
     Dosage: 0.15NG.0.02MG 0.01MG, 1 DAILY, ORAL
     Route: 048
     Dates: start: 20140608

REACTIONS (3)
  - Migraine [None]
  - Nausea [None]
  - Vomiting [None]
